FAERS Safety Report 4304478-3 (Version None)
Quarter: 2004Q1

REPORT INFORMATION
  Report Type: 
  Country: None (occurrence: None)
  Receive Date: 20040224
  Receipt Date: 20040213
  Transmission Date: 20041129
  Serious: Yes (Hospitalization)
  Sender: FDA-Public Use
  Company Number: RENA-10833

PATIENT
  Age: 76 Year
  Sex: Female

DRUGS (8)
  1. PHOSBLOCK - 250 MG TABLET [Suspect]
     Indication: HYPERPHOSPHATAEMIA
     Dosage: 0.75 G TID PO
     Route: 048
     Dates: start: 20030702, end: 20031118
  2. SODIUM PICOSULFATE [Concomitant]
  3. ALLOPURINOL [Concomitant]
  4. TOCOPHEROL ACETATE [Concomitant]
  5. REBAMIPIDE [Concomitant]
  6. POLYCARBOPHIL CALCIUM [Concomitant]
  7. AMEZINIUM METILSULFATE [Concomitant]
  8. ROXATIDINE ACETATE HCL [Concomitant]

REACTIONS (6)
  - ABDOMINAL SYMPTOM [None]
  - CONSTIPATION [None]
  - GASTROINTESTINAL HAEMORRHAGE [None]
  - GASTROINTESTINAL PERFORATION [None]
  - MELAENA [None]
  - VOMITING [None]
